FAERS Safety Report 17629354 (Version 1)
Quarter: 2020Q2

REPORT INFORMATION
  Report Type: Spontaneous
  Country: FR (occurrence: FR)
  Receive Date: 20200406
  Receipt Date: 20200406
  Transmission Date: 20200713
  Serious: Yes (Life-Threatening)
  Sender: FDA-Public Use
  Company Number: FR-TEVA-2020-FR-1218447

PATIENT
  Age: 67 Year
  Sex: Female

DRUGS (7)
  1. LAMICTAL [Suspect]
     Active Substance: LAMOTRIGINE
     Indication: WRONG PATIENT RECEIVED PRODUCT
     Dosage: 2 DF
     Route: 048
     Dates: start: 20200124, end: 20200124
  2. PARKINANE L P 5 MG, G?LULE ? LIB?RATION PROLONG?E [Suspect]
     Active Substance: TRIHEXYPHENIDYL HYDROCHLORIDE
     Indication: WRONG PATIENT RECEIVED PRODUCT
     Dosage: 1 DF
     Route: 048
     Dates: start: 20200124, end: 20200124
  3. DEPAMIDE 300 MG, COMPRIM? PELLICUL? GASTRO-R?SISTANT [Suspect]
     Active Substance: VALPROMIDE
     Indication: WRONG PATIENT RECEIVED PRODUCT
     Dosage: 2 DF
     Route: 048
     Dates: start: 20200124, end: 20200124
  4. MESTINON [Suspect]
     Active Substance: PYRIDOSTIGMINE BROMIDE
     Indication: WRONG PATIENT RECEIVED PRODUCT
     Dosage: 1 DF
     Route: 048
     Dates: start: 20200124, end: 20200124
  5. IRBESARTAN. [Suspect]
     Active Substance: IRBESARTAN
     Indication: WRONG PATIENT RECEIVED PRODUCT
     Dosage: 150 MG
     Route: 048
     Dates: start: 20200124, end: 20200124
  6. SERESTA 10 MG, COMPRIM? [Suspect]
     Active Substance: OXAZEPAM
     Indication: WRONG PATIENT RECEIVED PRODUCT
     Dosage: 1 DF
     Route: 048
     Dates: start: 20200124, end: 20200124
  7. DIPIPERON 40 MG, COMPRIM? S?CABLE [Suspect]
     Active Substance: PIPAMPERONE
     Indication: WRONG PATIENT RECEIVED PRODUCT
     Dosage: 0.5 DF
     Route: 048
     Dates: start: 20200124, end: 20200124

REACTIONS (2)
  - Coma [Recovered/Resolved]
  - Wrong patient received product [Recovered/Resolved]

NARRATIVE: CASE EVENT DATE: 20200124
